FAERS Safety Report 7852871-4 (Version None)
Quarter: 2011Q3

REPORT INFORMATION
  Report Type: 
  Country: None (occurrence: None)
  Receive Date: 20110914
  Receipt Date: 20100901
  Transmission Date: 20111222
  Serious: Yes (Other)
  Sender: FDA-Public Use
  Company Number: 1000016053

PATIENT
  Age: 18 Year
  Sex: Female
  Weight: 63 kg

DRUGS (3)
  1. CELEXA [Suspect]
     Indication: DEPRESSION
     Dosage: 20 MG (20 MG,1 IN 1 D),ORAL ; 10 MG (10 MG,1 IN 1 D),ORAL
     Route: 048
     Dates: start: 20100501, end: 20100701
  2. CELEXA [Suspect]
     Indication: DEPRESSION
     Dosage: 20 MG (20 MG,1 IN 1 D),ORAL ; 10 MG (10 MG,1 IN 1 D),ORAL
     Route: 048
     Dates: start: 20100729
  3. REBIF [Suspect]
     Indication: RELAPSING-REMITTING MULTIPLE SCLEROSIS
     Dosage: 132 MCG (44 MCG,3 IN 1 WK), SUBCUTANEOUS
     Route: 058
     Dates: start: 20081206

REACTIONS (4)
  - SUICIDAL IDEATION [None]
  - DELUSION [None]
  - HEADACHE [None]
  - HALLUCINATION, AUDITORY [None]
